FAERS Safety Report 6229816-6 (Version None)
Quarter: 2009Q2

REPORT INFORMATION
  Report Type: 
  Country: None (occurrence: None)
  Receive Date: 20090615
  Receipt Date: 20090603
  Transmission Date: 20091009
  Serious: Yes (Other)
  Sender: FDA-Public Use
  Company Number: ZA-PFIZER INC-2009222568

PATIENT
  Age: 35 Year

DRUGS (1)
  1. ZYVOXID [Suspect]
     Dosage: UNK

REACTIONS (4)
  - ACUTE PSYCHOSIS [None]
  - CATATONIA [None]
  - DELIRIUM [None]
  - SEROTONIN SYNDROME [None]
